FAERS Safety Report 17243676 (Version 3)
Quarter: 2020Q1

REPORT INFORMATION
  Report Type: Report from Study
  Country: US (occurrence: US)
  Receive Date: 20200107
  Receipt Date: 20200123
  Transmission Date: 20200409
  Serious: Yes (Death, Hospitalization, Other)
  Sender: FDA-Public Use
  Company Number: US-GLAXOSMITHKLINE-US2019TSO237623

PATIENT
  Sex: Female

DRUGS (3)
  1. XPOVIO [Concomitant]
     Active Substance: SELINEXOR
     Indication: PRODUCT USED FOR UNKNOWN INDICATION
     Dosage: 80 MG ONCE A WEEK
     Route: 048
     Dates: start: 20190214
  2. ZOFRAN [Concomitant]
     Active Substance: ONDANSETRON HYDROCHLORIDE
     Indication: NAUSEA
     Dosage: UNK
  3. ROLAPITANT HYDROCHLORIDE [Suspect]
     Active Substance: ROLAPITANT
     Indication: PRODUCT USED FOR UNKNOWN INDICATION
     Dosage: 180 MG EVERY 2 WEEKS
     Route: 065
     Dates: start: 20191223

REACTIONS (10)
  - Death [Fatal]
  - Anaemia [Unknown]
  - Product dose omission [Unknown]
  - Chest pain [Unknown]
  - Red blood cell count decreased [Unknown]
  - Blood potassium increased [Unknown]
  - Constipation [Recovered/Resolved]
  - Decreased appetite [Unknown]
  - Nausea [Unknown]
  - Platelet count decreased [Unknown]

NARRATIVE: CASE EVENT DATE: 20191231
